FAERS Safety Report 5919711-1 (Version None)
Quarter: 2008Q4

REPORT INFORMATION
  Report Type: 
  Country: None (occurrence: None)
  Receive Date: 20081015
  Receipt Date: 20080930
  Transmission Date: 20090506
  Serious: Yes (Death, Other)
  Sender: FDA-Public Use
  Company Number: IR-GENENTECH-269560

PATIENT
  Age: 19 Year
  Sex: Male

DRUGS (2)
  1. MABTHERA [Suspect]
     Indication: WEGENER'S GRANULOMATOSIS
     Dosage: 1000 MG, X2
     Route: 042
     Dates: start: 20080730, end: 20080813
  2. ENDOXAN [Concomitant]
     Indication: DRUG USE FOR UNKNOWN INDICATION

REACTIONS (2)
  - PULMONARY ALVEOLAR HAEMORRHAGE [None]
  - RESPIRATORY DISTRESS [None]
